FAERS Safety Report 21337141 (Version 2)
Quarter: 2022Q3

REPORT INFORMATION
  Report Type: Report from Study
  Country: KR (occurrence: KR)
  Receive Date: 20220915
  Receipt Date: 20220920
  Transmission Date: 20221027
  Serious: Yes (Hospitalization)
  Sender: FDA-Public Use
  Company Number: KR-GLAXOSMITHKLINE-KR2022GSK132133

PATIENT

DRUGS (21)
  1. BELANTAMAB MAFODOTIN [Suspect]
     Active Substance: BELANTAMAB MAFODOTIN
     Indication: Plasma cell myeloma refractory
     Dosage: 2.50 MG/KG Q4W (DAY 1 OF 28 DAY CYCLE)
     Route: 042
     Dates: start: 20210706, end: 20210706
  2. BELANTAMAB MAFODOTIN [Suspect]
     Active Substance: BELANTAMAB MAFODOTIN
     Dosage: 1.90 MG/KG Q4W (DAY 1 OF 28 DAY CYCLE)
     Route: 042
     Dates: start: 20210803, end: 20210803
  3. BELANTAMAB MAFODOTIN [Suspect]
     Active Substance: BELANTAMAB MAFODOTIN
     Dosage: 1.90 MG/KG Q4W (DAY 1 OF 28 DAY CYCLE)
     Route: 042
     Dates: start: 20210831
  4. POMALIDOMIDE [Suspect]
     Active Substance: POMALIDOMIDE
     Indication: Plasma cell myeloma refractory
     Dosage: 4 MG  DAYS 1-21 OF 28 DAY CYCLE
     Route: 048
     Dates: start: 20210706, end: 20210726
  5. POMALIDOMIDE [Suspect]
     Active Substance: POMALIDOMIDE
     Dosage: 4 MG DAYS 1-21 OF 28 DAY CYCLE
     Route: 048
     Dates: start: 20210803, end: 20210823
  6. POMALIDOMIDE [Suspect]
     Active Substance: POMALIDOMIDE
     Dosage: 4 MG DAYS 1-21 OF 28 DAY CYCLE
     Route: 048
     Dates: start: 20220831, end: 20220912
  7. DEXAMETHASONE [Suspect]
     Active Substance: DEXAMETHASONE
     Indication: Plasma cell myeloma refractory
     Dosage: 40 MG DAYS 1, 8 , 15 AND 22 OF 28 DAY CYCLE
     Route: 048
     Dates: start: 20210706, end: 20210727
  8. DEXAMETHASONE [Suspect]
     Active Substance: DEXAMETHASONE
     Dosage: 40 MG DAYS 1, 8 , 15 AND 22 OF 28 DAY CYCLE
     Route: 048
     Dates: start: 20210803, end: 20210824
  9. DEXAMETHASONE [Suspect]
     Active Substance: DEXAMETHASONE
     Dosage: 40MG, DAY 1 AND 8
     Route: 048
     Dates: start: 20220831, end: 20220907
  10. MEPERIDINE [Concomitant]
     Active Substance: MEPERIDINE
     Indication: Pain prophylaxis
     Dosage: 50 MG ONCE
     Route: 042
     Dates: start: 20210614, end: 20210614
  11. GLIMEPIRIDE [Concomitant]
     Active Substance: GLIMEPIRIDE
     Indication: Diabetes mellitus
     Dosage: 2 MG, QD
     Route: 048
     Dates: start: 20190802
  12. JANUMET [Concomitant]
     Active Substance: METFORMIN HYDROCHLORIDE\SITAGLIPTIN PHOSPHATE
     Indication: Diabetes mellitus
     Dosage: 50MG/850 MG
     Route: 048
     Dates: start: 20171103, end: 20220414
  13. JANUMET [Concomitant]
     Active Substance: METFORMIN HYDROCHLORIDE\SITAGLIPTIN PHOSPHATE
     Dosage: 50MG/1000 MG
     Route: 048
     Dates: start: 20220415
  14. INSULIN HUMAN [Concomitant]
     Active Substance: INSULIN HUMAN
     Indication: Diabetes mellitus
     Dosage: 10 IU, QD
     Route: 058
     Dates: start: 20210723
  15. CARVEDILOL [Concomitant]
     Active Substance: CARVEDILOL
     Indication: Supraventricular tachycardia
     Dosage: 3.125 MG, QD
     Route: 048
     Dates: start: 20200904
  16. VERAPAMIL [Concomitant]
     Active Substance: VERAPAMIL HYDROCHLORIDE
     Indication: Supraventricular tachycardia
     Dosage: 40 MG, QD
     Route: 048
     Dates: start: 20200904
  17. DICAMAX D [Concomitant]
     Indication: Vitamin supplementation
     Dosage: 250 MG/1000 UNIT
     Route: 048
     Dates: start: 20160607
  18. DICAMAX D [Concomitant]
     Dosage: 50 MG/1000 MG
     Route: 048
     Dates: start: 20220415
  19. HYDROCORTISONE [Concomitant]
     Active Substance: HYDROCORTISONE
     Indication: Angioedema
     Dosage: 100 MG, ONCE
     Route: 042
     Dates: start: 20210712, end: 20210712
  20. FEXOFENADINE [Concomitant]
     Active Substance: FEXOFENADINE HYDROCHLORIDE
     Indication: Angioedema
     Dosage: 120 MG, QD
     Route: 048
     Dates: start: 20210712, end: 20210716
  21. OLOTEN PLUS [Concomitant]
     Indication: Conjunctivitis
     Dosage: 1 DROP
     Route: 031

REACTIONS (1)
  - Atypical pneumonia [Recovering/Resolving]

NARRATIVE: CASE EVENT DATE: 20220909
